FAERS Safety Report 24916380 (Version 2)
Quarter: 2025Q1

REPORT INFORMATION
  Report Type: Spontaneous
  Country: DE (occurrence: DE)
  Receive Date: 20250203
  Receipt Date: 20250212
  Transmission Date: 20250409
  Serious: Yes (Other)
  Sender: BAYER HEALTHCARE PHARMACEUTICALS INC.
  Company Number: DE-BAYER-2025A009674

PATIENT
  Age: 79 Year
  Sex: Male

DRUGS (12)
  1. NUBEQA [Suspect]
     Active Substance: DAROLUTAMIDE
     Indication: Prostate cancer
     Dates: start: 20250115, end: 202501
  2. NUBEQA [Suspect]
     Active Substance: DAROLUTAMIDE
     Indication: Prostate cancer
     Dates: start: 202501
  3. Vigantol [Concomitant]
  4. FERROUS SULFATE [Concomitant]
     Active Substance: FERROUS SULFATE
  5. PANTOPRAZOLE SODIUM [Concomitant]
     Active Substance: PANTOPRAZOLE SODIUM
  6. METFORMIN [Concomitant]
     Active Substance: METFORMIN HYDROCHLORIDE
  7. PREGABALIN [Concomitant]
     Active Substance: PREGABALIN
  8. ELIQUIS [Concomitant]
     Active Substance: APIXABAN
  9. ATORVASTATIN CALCIUM\EZETIMIBE [Concomitant]
     Active Substance: ATORVASTATIN CALCIUM\EZETIMIBE
  10. TORSEMIDE [Concomitant]
     Active Substance: TORSEMIDE
  11. RAMIPRIL [Concomitant]
     Active Substance: RAMIPRIL
  12. METOPROLOL [Concomitant]
     Active Substance: METOPROLOL

REACTIONS (7)
  - Renal failure [None]
  - Kidney congestion [None]
  - Influenza [None]
  - Hot flush [None]
  - Asthenia [Not Recovered/Not Resolved]
  - Paraesthesia [Not Recovered/Not Resolved]
  - Fatigue [Not Recovered/Not Resolved]

NARRATIVE: CASE EVENT DATE: 20250115
